FAERS Safety Report 5332757-X (Version None)
Quarter: 2007Q2

REPORT INFORMATION
  Report Type: 
  Country: None (occurrence: None)
  Receive Date: 20070523
  Receipt Date: 20070511
  Transmission Date: 20071010
  Serious: Yes (Other)
  Sender: FDA-Public Use
  Company Number: DE-PFIZER INC-2007039372

PATIENT
  Sex: Male

DRUGS (1)
  1. CABASERIL [Suspect]
     Indication: PARKINSON'S DISEASE
     Route: 048

REACTIONS (2)
  - IMPAIRED HEALING [None]
  - OEDEMA PERIPHERAL [None]
